FAERS Safety Report 4828735-7 (Version None)
Quarter: 2005Q4

REPORT INFORMATION
  Report Type: 
  Country: None (occurrence: None)
  Receive Date: 20051115
  Receipt Date: 20050804
  Transmission Date: 20060501
  Serious: Yes (Death)
  Sender: FDA-Public Use
  Company Number: US-MERCK-0508USA01277

PATIENT
  Age: 71 Year
  Sex: Male
  Weight: 84 kg

DRUGS (5)
  1. VIOXX [Suspect]
     Indication: ARTHRALGIA
     Route: 048
     Dates: start: 20030223, end: 20030727
  2. CEPHALEXIN [Concomitant]
     Route: 065
  3. HYDROCHLOROTHIAZIDE [Concomitant]
     Indication: HYPERTENSION
     Route: 065
  4. VASOTEC [Concomitant]
     Indication: HYPERTENSION
     Route: 048
  5. VIAGRA [Concomitant]
     Route: 065

REACTIONS (5)
  - ACUTE MYOCARDIAL INFARCTION [None]
  - BACK PAIN [None]
  - BLOOD PRESSURE SYSTOLIC INCREASED [None]
  - GOUT [None]
  - HYPERTENSION [None]
